FAERS Safety Report 23420959 (Version 1)
Quarter: 2024Q1

REPORT INFORMATION
  Report Type: Spontaneous
  Country: GB (occurrence: GB)
  Receive Date: 20240119
  Receipt Date: 20240119
  Transmission Date: 20240409
  Serious: Yes (Other)
  Sender: FDA-Public Use
  Company Number: GB-EPICPHARMA-GB-2024EPCLIT00060

PATIENT
  Age: 67 Year
  Sex: Female

DRUGS (3)
  1. DORZOLAMIDE HYDROCHLORIDE AND TIMOLOL MALEATE [Suspect]
     Active Substance: DORZOLAMIDE HYDROCHLORIDE\TIMOLOL MALEATE
     Indication: Glaucoma
     Route: 061
  2. BIMATOPROST [Suspect]
     Active Substance: BIMATOPROST
     Indication: Glaucoma
     Route: 061
  3. BRIMONIDINE [Suspect]
     Active Substance: BRIMONIDINE TARTRATE
     Indication: Glaucoma
     Route: 061

REACTIONS (1)
  - Ocular surface disease [Recovered/Resolved]
